FAERS Safety Report 7712929-7 (Version None)
Quarter: 2011Q3

REPORT INFORMATION
  Report Type: 
  Country: None (occurrence: None)
  Receive Date: 20110826
  Receipt Date: 20110820
  Transmission Date: 20111222
  Serious: Yes (Other)
  Sender: FDA-Public Use
  Company Number: PHHY2011BR75138

PATIENT
  Sex: Female

DRUGS (6)
  1. GELOL SPRAY [Concomitant]
  2. EYE DROPS [Concomitant]
     Dosage: UNK UKN, TWICE DAILY
  3. DICLOFENAC SODIUM [Suspect]
     Dosage: 50 MG, UNK
  4. ACETAMINOPHEN W/ CODEINE [Suspect]
     Dosage: 30 MG, UNK
  5. CLINIS [Suspect]
     Dosage: 100 MG, UNK
  6. COMINEX [Concomitant]

REACTIONS (6)
  - ABDOMINAL PAIN UPPER [None]
  - RETINAL DETACHMENT [None]
  - TENSION [None]
  - PAIN [None]
  - MUSCULOSKELETAL PAIN [None]
  - INTERVERTEBRAL DISC PROTRUSION [None]
